FAERS Safety Report 15720162 (Version 2)
Quarter: 2019Q1

REPORT INFORMATION
  Report Type: Spontaneous
  Country: US (occurrence: US)
  Receive Date: 20181213
  Receipt Date: 20190124
  Transmission Date: 20190417
  Serious: Yes (Other)
  Sender: FDA-Public Use
  Company Number: US-TEVA-2018-US-984679

PATIENT
  Sex: Female

DRUGS (1)
  1. IMATINIB MESYLATE TEVA [Suspect]
     Active Substance: IMATINIB MESYLATE
     Indication: SYNOVITIS
     Route: 065
     Dates: start: 2017, end: 201811

REACTIONS (1)
  - Blood alkaline phosphatase increased [Recovered/Resolved]

NARRATIVE: CASE EVENT DATE: 20181029
